FAERS Safety Report 5581637-3 (Version None)
Quarter: 2008Q1

REPORT INFORMATION
  Report Type: 
  Country: None (occurrence: None)
  Receive Date: 20080104
  Receipt Date: 20071220
  Transmission Date: 20080703
  Serious: Yes (Hospitalization)
  Sender: FDA-Public Use
  Company Number: JP-BAYER-200710998BYL

PATIENT
  Age: 71 Year
  Sex: Male

DRUGS (5)
  1. ASPIRIN [Suspect]
     Indication: CEREBRAL INFARCTION
     Dosage: TOTAL DAILY DOSE: 100 MG  UNIT DOSE: 100 MG
     Route: 048
     Dates: start: 20060921, end: 20070125
  2. ENALAPRIL MALEATE [Suspect]
     Indication: HYPERTENSION
     Dosage: TOTAL DAILY DOSE: 5 MG
     Route: 048
     Dates: start: 20060921, end: 20070125
  3. DIGOSIN [Suspect]
     Indication: ATRIAL FIBRILLATION
     Dosage: TOTAL DAILY DOSE: 0.125 MG
     Route: 048
     Dates: start: 20060921, end: 20070125
  4. WARFARIN SODIUM [Suspect]
     Indication: CEREBRAL INFARCTION
     Dosage: TOTAL DAILY DOSE: 1.25 MG
     Route: 048
     Dates: start: 20061030, end: 20061112
  5. WARFARIN SODIUM [Suspect]
     Dosage: TOTAL DAILY DOSE: 1.5 MG
     Route: 048
     Dates: start: 20061113, end: 20070125

REACTIONS (1)
  - LIVER DISORDER [None]
